FAERS Safety Report 4945011-2 (Version None)
Quarter: 2006Q1

REPORT INFORMATION
  Report Type: 
  Country: None (occurrence: None)
  Receive Date: 20060117
  Receipt Date: 20050622
  Transmission Date: 20060701
  Serious: Yes (Hospitalization)
  Sender: FDA-Public Use
  Company Number: A03200501909

PATIENT
  Age: 82 Year
  Sex: Male
  Weight: 54.87 kg

DRUGS (11)
  1. PLAVIX [Suspect]
     Indication: HYPERTENSION
     Dosage: 75 MG QD - ORAL
     Route: 048
     Dates: start: 20050503, end: 20050609
  2. PLAVIX [Suspect]
     Indication: TRANSIENT ISCHAEMIC ATTACK
     Dosage: 75 MG QD - ORAL
     Route: 048
     Dates: start: 20050503, end: 20050609
  3. VALSARTAN [Concomitant]
  4. OXYBUTYNIN HYDROCHLORIDE [Concomitant]
  5. OXANDROLONE [Concomitant]
  6. SERTRALINE HYDROCHLORIDE [Concomitant]
  7. MEMANTINE HCL [Concomitant]
  8. THIAMINE MONONITRATE [Concomitant]
  9. MULTIVITAMIN [Concomitant]
  10. FUROSEMIDE [Concomitant]
  11. POTASSIUM [Concomitant]

REACTIONS (1)
  - RECTAL HAEMORRHAGE [None]
